FAERS Safety Report 10617874 (Version 1)
Quarter: 2014Q4

REPORT INFORMATION
  Report Type: Spontaneous
  Country: JP (occurrence: JP)
  Receive Date: 20141201
  Receipt Date: 20141201
  Transmission Date: 20150529
  Serious: Yes (Other)
  Sender: FDA-Public Use
  Company Number: PHHY2011JP122070

PATIENT
  Age: 70 Year

DRUGS (1)
  1. EXJADE [Suspect]
     Active Substance: DEFERASIROX
     Indication: APLASTIC ANAEMIA
     Dosage: 500 MG, DAILY
     Route: 065
     Dates: start: 20110407

REACTIONS (3)
  - Skin discolouration [Unknown]
  - Hepatic cirrhosis [Unknown]
  - Rash [Unknown]

NARRATIVE: CASE EVENT DATE: 20110421
